FAERS Safety Report 19271590 (Version 2)
Quarter: 2021Q2

REPORT INFORMATION
  Report Type: Report from Study
  Country: IT (occurrence: IT)
  Receive Date: 20210518
  Receipt Date: 20210527
  Transmission Date: 20210717
  Serious: Yes (Hospitalization, Other)
  Sender: FDA-Public Use
  Company Number: IT-TAKEDA-2021TUS031318

PATIENT
  Age: 12 Year
  Sex: Male

DRUGS (2)
  1. IDURSULFASE [Suspect]
     Active Substance: IDURSULFASE
     Indication: MUCOPOLYSACCHARIDOSIS II
     Dosage: 3 VIALS,EVERY WEEK
     Route: 042
     Dates: start: 20130102
  2. IDURSULFASE [Suspect]
     Active Substance: IDURSULFASE
     Dosage: 4 VIALS, 1/WEEK
     Route: 042
     Dates: start: 20130102

REACTIONS (1)
  - Syncope [Recovered/Resolved]
